FAERS Safety Report 9457757 (Version 1)
Quarter: 2013Q3

REPORT INFORMATION
  Report Type: Spontaneous
  Country: US (occurrence: None)
  Receive Date: 20130809
  Receipt Date: 20130809
  Transmission Date: 20140515
  Serious: Yes (Hospitalization, Other)
  Sender: FDA-Public Use
  Company Number: KAD201307-000903

PATIENT
  Age: 63 Year
  Sex: Male
  Weight: 61.22 kg

DRUGS (4)
  1. RIBASPHERE (RIBAPAK (RIBAVIRIN) [Suspect]
     Dosage: (400 MG AM AND 600 MG PM)
     Dates: start: 20121226
  2. INCIVEK (TELAPRERVIR) [Suspect]
     Dates: start: 20121226
  3. LEVOTHYROXINE [Concomitant]
  4. METHADONE [Concomitant]

REACTIONS (5)
  - Dyspnoea [None]
  - Pneumonia [None]
  - Anaemia [None]
  - Heart rate increased [None]
  - Dyspnoea exertional [None]
